FAERS Safety Report 6358975-X (Version None)
Quarter: 2009Q3

REPORT INFORMATION
  Report Type: 
  Country: None (occurrence: None)
  Receive Date: 20090914
  Receipt Date: 20090907
  Transmission Date: 20100115
  Serious: Yes (Hospitalization)
  Sender: FDA-Public Use
  Company Number: WAES 0909USA01068

PATIENT
  Age: 75 Year
  Sex: Female

DRUGS (3)
  1. FOSAMAX [Suspect]
     Indication: OSTEOPOROSIS
     Dosage: 35 MG/WKY PO
     Route: 048
     Dates: start: 20090518
  2. CALCIUM (UNSPECIFIED) [Concomitant]
  3. CHOLECALCIFEROL (+) VITAMIN A [Concomitant]

REACTIONS (1)
  - ENTEROCOLITIS [None]
